FAERS Safety Report 7190618-8 (Version None)
Quarter: 2010Q4

REPORT INFORMATION
  Report Type: 
  Country: None (occurrence: None)
  Receive Date: 20101221
  Receipt Date: 20101221
  Transmission Date: 20110411
  Serious: No
  Sender: FDA-Public Use
  Company Number: None

PATIENT
  Age: 38 Year
  Sex: Female
  Weight: 58.9676 kg

DRUGS (1)
  1. CREST PRO-HEALTH WHITENING TOOTH 0.454%STANNOUS FLOURIDE PROCTER AND G [Suspect]
     Indication: DENTAL DISORDER PROPHYLAXIS
     Dates: start: 20101201, end: 20101216

REACTIONS (2)
  - PAIN [None]
  - STOMATITIS [None]
